FAERS Safety Report 24818998 (Version 1)
Quarter: 2025Q1

REPORT INFORMATION
  Report Type: Spontaneous
  Country: US (occurrence: None)
  Receive Date: 20250107
  Receipt Date: 20250107
  Transmission Date: 20250408
  Serious: Yes (Hospitalization)
  Sender: FDA-CTU
  Company Number: None

PATIENT
  Age: 37 Year
  Sex: Female
  Weight: 85.5 kg

DRUGS (6)
  1. QELBREE [Suspect]
     Active Substance: VILOXAZINE HYDROCHLORIDE
     Indication: Attention deficit hyperactivity disorder
     Dates: start: 20241111, end: 20250104
  2. UNSPECIFIED INGREDIENT [Concomitant]
     Active Substance: UNSPECIFIED INGREDIENT
  3. ZOLOFT [Concomitant]
     Active Substance: SERTRALINE HYDROCHLORIDE
  4. Limictal [Concomitant]
  5. VITAMINS [Concomitant]
     Active Substance: VITAMINS
  6. MELATONIN [Concomitant]
     Active Substance: MELATONIN

REACTIONS (10)
  - Vomiting [None]
  - Chills [None]
  - Hyperhidrosis [None]
  - Feeling of body temperature change [None]
  - Migraine [None]
  - Feeling abnormal [None]
  - Near death experience [None]
  - Fatigue [None]
  - Withdrawal syndrome [None]
  - Product communication issue [None]

NARRATIVE: CASE EVENT DATE: 20250106
